FAERS Safety Report 8389178-5 (Version None)
Quarter: 2012Q2

REPORT INFORMATION
  Report Type: 
  Country: None (occurrence: None)
  Receive Date: 20120528
  Receipt Date: 20120525
  Transmission Date: 20120825
  Serious: Yes (Death)
  Sender: FDA-Public Use
  Company Number: PHEH2012US010797

PATIENT
  Sex: Female

DRUGS (8)
  1. ZOMETA [Suspect]
     Indication: BREAST CANCER
     Dosage: 4 MG/5 ML, QMO
     Route: 042
     Dates: start: 20120309
  2. LORAZEPAM [Concomitant]
  3. HERCEPTIN [Concomitant]
  4. DEXAMETHASONE [Concomitant]
  5. CALCIUM [Concomitant]
  6. POTASSIUM CHLORIDE [Concomitant]
  7. FAMOTIDINE [Concomitant]
  8. DIPHENHYDRAMINE HCL [Concomitant]

REACTIONS (1)
  - DEATH [None]
